FAERS Safety Report 4883265-1 (Version None)
Quarter: 2006Q1

REPORT INFORMATION
  Report Type: 
  Country: None (occurrence: None)
  Receive Date: 20060118
  Receipt Date: 20060105
  Transmission Date: 20060701
  Serious: Yes (Other)
  Sender: FDA-Public Use
  Company Number: AU-NOVOPROD-249853

PATIENT
  Age: 70 Year
  Sex: Male

DRUGS (1)
  1. MIXTARD 30/70 PENFILL [Suspect]
     Indication: DRUG USE FOR UNKNOWN INDICATION

REACTIONS (3)
  - BLOOD GLUCOSE INCREASED [None]
  - DIALYSIS [None]
  - RENAL DISORDER [None]
